FAERS Safety Report 7761156-6 (Version None)
Quarter: 2011Q3

REPORT INFORMATION
  Report Type: 
  Country: None (occurrence: None)
  Receive Date: 20110920
  Receipt Date: 20110908
  Transmission Date: 20111222
  Serious: Yes (Hospitalization)
  Sender: FDA-Public Use
  Company Number: US-ELI_LILLY_AND_COMPANY-US201006006432

PATIENT
  Sex: Female

DRUGS (16)
  1. CELEXA [Concomitant]
  2. FORTEO [Suspect]
     Indication: OSTEOPOROSIS
     Dosage: 20 UG, DAILY (1/D)
     Route: 065
  3. VITAMIN D [Concomitant]
  4. ASPIRIN [Concomitant]
  5. OMEPRAZOLE [Concomitant]
  6. VIVELLE [Concomitant]
  7. METOPROLOL TARTRATE [Concomitant]
  8. LYRICA [Concomitant]
  9. CALCITRIOL [Concomitant]
  10. FORTEO [Suspect]
     Dosage: 20 UG, QD
     Dates: end: 20110701
  11. LOSARTAN POTASSIUM [Concomitant]
     Dosage: 25 MG, UNK
  12. CALCIUM CARBONATE [Concomitant]
  13. TYLENOL                                 /SCH/ [Concomitant]
  14. HYDROCHLOROTHIAZIDE [Concomitant]
  15. TRIMETHOPRIM [Concomitant]
  16. FLEXERIL [Concomitant]

REACTIONS (7)
  - HEART RATE DECREASED [None]
  - CHEST PAIN [None]
  - ANXIETY [None]
  - HYPOTENSION [None]
  - NAUSEA [None]
  - DIZZINESS [None]
  - MUSCLE SPASMS [None]
